FAERS Safety Report 10051306 (Version 2)
Quarter: 2014Q2

REPORT INFORMATION
  Report Type: Spontaneous
  Country: US (occurrence: US)
  Receive Date: 20140401
  Receipt Date: 20140508
  Transmission Date: 20141212
  Serious: No
  Sender: FDA-Public Use
  Company Number: US-PFIZER INC-2014087398

PATIENT
  Age: 76 Year
  Sex: Female
  Weight: 49.9 kg

DRUGS (5)
  1. CYTOMEL [Suspect]
     Indication: HYPOTHYROIDISM
     Dosage: 5 UG, 3X/DAY
  2. ARMOUR THYROID [Suspect]
     Indication: HYPOTHYROIDISM
     Dosage: 2 G, 1X/DAY
     Dates: start: 2001, end: 2001
  3. SYNTHROID [Suspect]
     Indication: HYPOTHYROIDISM
     Dosage: 100 UG, 1X/DAY
     Dates: start: 2002
  4. SYNTHROID [Suspect]
     Dosage: 200 UG, 1X/DAY
  5. SYNTHROID [Suspect]
     Dosage: UNK, 1X/DAY

REACTIONS (1)
  - Drug ineffective [Unknown]
